FAERS Safety Report 4518982-6 (Version None)
Quarter: 2004Q4

REPORT INFORMATION
  Report Type: 
  Country: None (occurrence: None)
  Receive Date: 20041201
  Receipt Date: 20041119
  Transmission Date: 20050328
  Serious: Yes (Hospitalization)
  Sender: FDA-Public Use
  Company Number: 2004078000

PATIENT
  Age: 55 Year
  Sex: Male

DRUGS (3)
  1. ATORVASTATIN (ATORVASTATIN) [Suspect]
     Indication: HYPERCHOLESTEROLAEMIA
     Dosage: 40 MG (40 MG, 1 IN 1 D), ORAL
     Route: 048
     Dates: start: 20001004, end: 20040617
  2. HYZAAR [Concomitant]
  3. CIMETIDINE [Concomitant]

REACTIONS (9)
  - ALANINE AMINOTRANSFERASE INCREASED [None]
  - BLOOD CREATINE PHOSPHOKINASE MB INCREASED [None]
  - BLOOD CREATININE INCREASED [None]
  - BLOOD GLUCOSE INCREASED [None]
  - ELECTROCARDIOGRAM ST-T SEGMENT ABNORMAL [None]
  - GLOMERULAR FILTRATION RATE DECREASED [None]
  - GLYCOSYLATED HAEMOGLOBIN INCREASED [None]
  - MYALGIA [None]
  - PAIN [None]
